FAERS Safety Report 6868846-8 (Version None)
Quarter: 2010Q3

REPORT INFORMATION
  Report Type: 
  Country: None (occurrence: None)
  Receive Date: 20100722
  Receipt Date: 20080728
  Transmission Date: 20110219
  Serious: Yes (Other)
  Sender: FDA-Public Use
  Company Number: US-PFIZER INC-2008053466

PATIENT
  Sex: Female
  Weight: 44.5 kg

DRUGS (4)
  1. CHANTIX [Suspect]
     Indication: SMOKING CESSATION THERAPY
     Dates: start: 20070101, end: 20070101
  2. VALTREX [Concomitant]
  3. DIAZEPAM [Concomitant]
  4. PREMARIN [Concomitant]

REACTIONS (2)
  - DEPRESSION [None]
  - LETHARGY [None]
